FAERS Safety Report 4520379-X (Version None)
Quarter: 2004Q4

REPORT INFORMATION
  Report Type: 
  Country: None (occurrence: None)
  Receive Date: 20041206
  Receipt Date: 20041206
  Transmission Date: 20050328
  Serious: Yes (Disabling, Other)
  Sender: FDA-Public Use
  Company Number: None

PATIENT
  Age: 30 Year
  Sex: Female
  Weight: 65.7716 kg

DRUGS (1)
  1. LUPRON DEPOT [Suspect]
     Indication: MENSTRUAL DISORDER
     Dates: start: 20000513, end: 20010510

REACTIONS (1)
  - BONE DISORDER [None]
